FAERS Safety Report 20235758 (Version 1)
Quarter: 2021Q4

REPORT INFORMATION
  Report Type: Other
  Country: PL (occurrence: PL)
  Receive Date: 20211228
  Receipt Date: 20211228
  Transmission Date: 20220303
  Serious: Yes (Hospitalization)
  Sender: FDA-Public Use
  Company Number: PL-WZFPOLFA-158373

PATIENT
  Age: 11 Year
  Sex: Male
  Weight: 50 kg

DRUGS (4)
  1. DIAZEPAM [Suspect]
     Active Substance: DIAZEPAM
     Indication: Extrapyramidal disorder
     Dosage: RECTAL
     Route: 065
  2. DIAZEPAM [Suspect]
     Active Substance: DIAZEPAM
     Dosage: RECTAL
     Route: 065
  3. RISPERIDONE [Suspect]
     Active Substance: RISPERIDONE
     Indication: Aggression
     Dosage: 5 MG
     Route: 048
  4. RISPERIDONE [Suspect]
     Active Substance: RISPERIDONE
     Indication: Attention deficit hyperactivity disorder
     Dosage: 0.25 MG
     Route: 048

REACTIONS (7)
  - Accidental poisoning [Unknown]
  - Extrapyramidal disorder [Recovered/Resolved]
  - Blood pressure decreased [Recovering/Resolving]
  - Parkinsonism [Unknown]
  - Therapeutic product effect incomplete [Unknown]
  - Accidental overdose [Unknown]
  - Hypotension [Unknown]
